FAERS Safety Report 14481718 (Version 4)
Quarter: 2018Q2

REPORT INFORMATION
  Report Type: Spontaneous
  Country: CO (occurrence: CO)
  Receive Date: 20180202
  Receipt Date: 20180604
  Transmission Date: 20180711
  Serious: Yes (Life-Threatening, Hospitalization, Other)
  Sender: FDA-Public Use
  Company Number: CO-CELGENEUS-COL-20170905873

PATIENT
  Age: 59 Year
  Sex: Female

DRUGS (2)
  1. ABRAXANE [Suspect]
     Active Substance: PACLITAXEL
     Indication: PANCREATIC CARCINOMA
     Dosage: 187 MILLIGRAM
     Route: 041
     Dates: start: 20170622, end: 20171214
  2. ABRAXANE [Suspect]
     Active Substance: PACLITAXEL
     Dosage: 187 MILLIGRAM
     Route: 041
     Dates: end: 20180419

REACTIONS (7)
  - Abdominal pain [Not Recovered/Not Resolved]
  - Anaemia [Unknown]
  - Rash [Recovering/Resolving]
  - Thrombocytopenia [Unknown]
  - Oedema peripheral [Not Recovered/Not Resolved]
  - Anaemia [Not Recovered/Not Resolved]
  - Pancreatic carcinoma [Not Recovered/Not Resolved]

NARRATIVE: CASE EVENT DATE: 20170912
